FAERS Safety Report 18062143 (Version 2)
Quarter: 2021Q2

REPORT INFORMATION
  Report Type: Spontaneous
  Country: CA (occurrence: CA)
  Receive Date: 20200723
  Receipt Date: 20210628
  Transmission Date: 20210717
  Serious: Yes (Hospitalization)
  Sender: FDA-Public Use
  Company Number: CA-TEVA-2020-CA-1803696

PATIENT
  Age: 94 Year
  Sex: Female

DRUGS (4)
  1. PREDNISONE. [Concomitant]
     Active Substance: PREDNISONE
  2. PANTOPRAZOLE [Suspect]
     Active Substance: PANTOPRAZOLE
  3. AMOXICILLIN. [Concomitant]
     Active Substance: AMOXICILLIN
  4. NORFLOXACIN [Concomitant]
     Active Substance: NORFLOXACIN

REACTIONS (3)
  - Eosinophils urine present [Recovered/Resolved]
  - Tubulointerstitial nephritis [Recovered/Resolved]
  - Creatinine urine increased [Recovered/Resolved]
